FAERS Safety Report 7977891-0 (Version None)
Quarter: 2011Q4

REPORT INFORMATION
  Report Type: 
  Country: None (occurrence: None)
  Receive Date: 20111214
  Receipt Date: 20111202
  Transmission Date: 20120403
  Serious: Yes (Other)
  Sender: FDA-Public Use
  Company Number: US-AMGEN-USASP2011064595

PATIENT
  Age: 66 Year
  Sex: Female

DRUGS (1)
  1. ENBREL [Suspect]
     Indication: RHEUMATOID ARTHRITIS
     Dosage: 50 MG, QWK
     Dates: start: 20050101

REACTIONS (6)
  - PNEUMONIA [None]
  - EMPHYSEMA [None]
  - CHRONIC OBSTRUCTIVE PULMONARY DISEASE [None]
  - RHEUMATOID ARTHRITIS [None]
  - DRUG EFFECT DECREASED [None]
  - IDIOPATHIC PULMONARY FIBROSIS [None]
